FAERS Safety Report 5105372-0 (Version None)
Quarter: 2006Q3

REPORT INFORMATION
  Report Type: 
  Country: None (occurrence: None)
  Receive Date: 20060731
  Receipt Date: 20060131
  Transmission Date: 20061208
  Serious: Yes (Other)
  Sender: FDA-Public Use
  Company Number: US-JNJFOC-20051204025

PATIENT
  Age: 48 Year
  Sex: Female

DRUGS (6)
  1. RISPERDAL [Suspect]
     Indication: SCHIZOPHRENIA
     Dates: start: 20050101
  2. LITHIUM (LITHIUM) [Concomitant]
  3. TOPAMAZ (TOPIRAMATE) [Concomitant]
  4. LUVOX [Concomitant]
  5. XANAX [Concomitant]
  6. ZOLOFT [Concomitant]

REACTIONS (1)
  - GRAND MAL CONVULSION [None]
